FAERS Safety Report 12204421 (Version 7)
Quarter: 2019Q1

REPORT INFORMATION
  Report Type: Report from Study
  Country: CA (occurrence: CA)
  Receive Date: 20160323
  Receipt Date: 20190104
  Transmission Date: 20190417
  Serious: Yes (Other)
  Sender: FDA-Public Use
  Company Number: CA-ROCHE-1698426

PATIENT
  Sex: Male

DRUGS (13)
  1. NORVASC [Suspect]
     Active Substance: AMLODIPINE BESYLATE
     Indication: PRODUCT USED FOR UNKNOWN INDICATION
     Route: 065
  2. ZYLOPRIM [Concomitant]
     Active Substance: ALLOPURINOL
  3. COVERSYL [Concomitant]
     Active Substance: PERINDOPRIL
  4. MELOXICAM. [Concomitant]
     Active Substance: MELOXICAM
  5. LANSOPRAZOLE. [Concomitant]
     Active Substance: LANSOPRAZOLE
  6. DUTASTERIDE. [Concomitant]
     Active Substance: DUTASTERIDE
  7. AMLODIPINE [Concomitant]
     Active Substance: AMLODIPINE BESYLATE
  8. ROSUVASTATIN. [Concomitant]
     Active Substance: ROSUVASTATIN
  9. ESBRIET [Suspect]
     Active Substance: PIRFENIDONE
     Route: 048
  10. ESBRIET [Suspect]
     Active Substance: PIRFENIDONE
     Indication: IDIOPATHIC PULMONARY FIBROSIS
     Route: 048
     Dates: start: 20151217
  11. TAMSULOSIN [Concomitant]
     Active Substance: TAMSULOSIN
  12. ELTROXIN [Concomitant]
     Active Substance: LEVOTHYROXINE
  13. METFORMIN [Concomitant]
     Active Substance: METFORMIN HYDROCHLORIDE

REACTIONS (3)
  - Carbon monoxide diffusing capacity decreased [Unknown]
  - Forced vital capacity decreased [Unknown]
  - Hypotension [Unknown]
